FAERS Safety Report 14111280 (Version 2)
Quarter: 2017Q4

REPORT INFORMATION
  Report Type: Spontaneous
  Country: US (occurrence: US)
  Receive Date: 20171020
  Receipt Date: 20171110
  Transmission Date: 20180321
  Serious: No
  Sender: FDA-Public Use
  Company Number: US-GLAXOSMITHKLINE-US2017160606

PATIENT
  Sex: Female

DRUGS (11)
  1. SINGULAIR [Concomitant]
     Active Substance: MONTELUKAST SODIUM
  2. XANAX [Concomitant]
     Active Substance: ALPRAZOLAM
  3. HYDROCODONE [Concomitant]
     Active Substance: HYDROCODONE
  4. ADVAIR DISKUS [Suspect]
     Active Substance: FLUTICASONE PROPIONATE\SALMETEROL XINAFOATE
     Indication: CHRONIC OBSTRUCTIVE PULMONARY DISEASE
     Dosage: 1 PUFF(S), QD
     Route: 055
     Dates: start: 2015
  5. INCRUSE ELLIPTA [Suspect]
     Active Substance: UMECLIDINIUM BROMIDE
     Indication: CHRONIC OBSTRUCTIVE PULMONARY DISEASE
     Dosage: 1 PUFF(S), QD
     Route: 055
     Dates: start: 201710, end: 20171017
  6. OMEPRAZOLE. [Concomitant]
     Active Substance: OMEPRAZOLE
  7. BENADRYL [Concomitant]
     Active Substance: DIPHENHYDRAMINE HYDROCHLORIDE
  8. PROAIR HFA [Concomitant]
     Active Substance: ALBUTEROL SULFATE
  9. ATORVASTATINE [Concomitant]
     Active Substance: ATORVASTATIN
  10. LISINOPRIL. [Concomitant]
     Active Substance: LISINOPRIL
  11. ASPIRIN. [Concomitant]
     Active Substance: ASPIRIN

REACTIONS (2)
  - Underdose [Unknown]
  - Candida infection [Recovering/Resolving]
